FAERS Safety Report 5897255-3 (Version None)
Quarter: 2008Q3

REPORT INFORMATION
  Report Type: 
  Country: None (occurrence: None)
  Receive Date: 20080923
  Receipt Date: 20080909
  Transmission Date: 20090109
  Serious: Yes (Other)
  Sender: FDA-Public Use
  Company Number: 1000001022

PATIENT
  Age: 32 Year
  Sex: Male
  Weight: 65 kg

DRUGS (1)
  1. ESCITALOPRAM OXALATE [Suspect]
     Indication: DEPRESSION
     Dosage: 20 MG (20 MG, 1 IN 1 D), ORAL
     Route: 048
     Dates: start: 20080601, end: 20080101

REACTIONS (1)
  - URTICARIA [None]
